FAERS Safety Report 19888474 (Version 6)
Quarter: 2022Q4

REPORT INFORMATION
  Report Type: Report from Study
  Country: CO (occurrence: CO)
  Receive Date: 20210927
  Receipt Date: 20221224
  Transmission Date: 20230113
  Serious: Yes (Other)
  Sender: FDA-Public Use
  Company Number: CO-NOVARTISPH-NVSC2021CO206539

PATIENT
  Sex: Female
  Weight: 69 kg

DRUGS (5)
  1. XOLAIR [Suspect]
     Active Substance: OMALIZUMAB
     Indication: Idiopathic urticaria
     Dosage: 300 MG, QMO (STARTED 5 YEAR AGO)
     Route: 058
  2. XOLAIR [Suspect]
     Active Substance: OMALIZUMAB
     Dosage: 300 MG, QMO
     Route: 058
  3. LOSARTAN [Suspect]
     Active Substance: LOSARTAN
     Indication: Hypertension
     Dosage: 50 MG, QD (4 YEARS AGO)
     Route: 048
  4. LEVOCETIRIZINE [Concomitant]
     Active Substance: LEVOCETIRIZINE
     Indication: Product used for unknown indication
     Dosage: 5 MG (5 YEARS AGO)
     Route: 048
  5. PREDNISOLONE [Concomitant]
     Active Substance: PREDNISOLONE
     Indication: Product used for unknown indication
     Dosage: UNK, PRN (5 YEARS AGO)
     Route: 048

REACTIONS (12)
  - Respiratory arrest [Unknown]
  - Drug dependence [Unknown]
  - Feeling abnormal [Unknown]
  - Swelling [Unknown]
  - Peripheral swelling [Unknown]
  - Skin lesion [Unknown]
  - Pruritus [Unknown]
  - Hypersensitivity [Unknown]
  - Mood altered [Unknown]
  - Urticaria [Unknown]
  - Inflammation [Unknown]
  - Product availability issue [Unknown]
